FAERS Safety Report 5361890-1 (Version None)
Quarter: 2007Q2

REPORT INFORMATION
  Report Type: 
  Country: None (occurrence: None)
  Receive Date: 20070619
  Receipt Date: 20070516
  Transmission Date: 20071010
  Serious: Yes (Disabling)
  Sender: FDA-Public Use
  Company Number: US-BAYER-200610072BWH

PATIENT
  Age: 54 Year
  Sex: Female
  Weight: 64 kg

DRUGS (2)
  1. AVELOX [Suspect]
     Indication: SINUSITIS
     Dosage: TOTAL DAILY DOSE: 400 MG  UNIT DOSE: 400 MG
     Route: 048
     Dates: start: 20050923
  2. DIAZEPAM [Concomitant]
     Indication: NECK PAIN

REACTIONS (7)
  - DEAFNESS NEUROSENSORY [None]
  - DISTURBANCE IN ATTENTION [None]
  - EAR PAIN [None]
  - INSOMNIA [None]
  - MALAISE [None]
  - NAUSEA [None]
  - TINNITUS [None]
